FAERS Safety Report 4350600-2 (Version None)
Quarter: 2004Q2

REPORT INFORMATION
  Report Type: 
  Country: None (occurrence: None)
  Receive Date: 20040427
  Receipt Date: 20040414
  Transmission Date: 20050107
  Serious: Yes (Other)
  Sender: FDA-Public Use
  Company Number: US-SHR-04-024003

PATIENT
  Age: 39 Year
  Sex: Female

DRUGS (1)
  1. YASMIN [Suspect]
     Indication: METRORRHAGIA
     Dosage: 1 TAB(S),1X/DAY, ORAL
     Route: 048
     Dates: start: 20030401, end: 20031101

REACTIONS (5)
  - AMNESIA [None]
  - EMOTIONAL DISTRESS [None]
  - LEARNING DISABILITY [None]
  - MENOPAUSAL DISORDER [None]
  - NIGHT SWEATS [None]
